FAERS Safety Report 6402012-5 (Version None)
Quarter: 2009Q4

REPORT INFORMATION
  Report Type: 
  Country: None (occurrence: None)
  Receive Date: 20091015
  Receipt Date: 20090925
  Transmission Date: 20100525
  Serious: Yes (Other)
  Sender: FDA-Public Use
  Company Number: US-NAPPMUNDI-USA-2009-0040348

PATIENT
  Sex: Female
  Weight: 49.887 kg

DRUGS (1)
  1. OXYCONTIN [Suspect]
     Indication: ANALGESIC THERAPY
     Dosage: UNK
     Dates: start: 20030110, end: 20030929

REACTIONS (3)
  - BACK PAIN [None]
  - COMA [None]
  - MEMORY IMPAIRMENT [None]
